FAERS Safety Report 19444608 (Version 1)
Quarter: 2021Q2

REPORT INFORMATION
  Report Type: Report from Study
  Country: US (occurrence: US)
  Receive Date: 20210621
  Receipt Date: 20210621
  Transmission Date: 20210717
  Serious: Yes (Other)
  Sender: FDA-Public Use
  Company Number: US-MYLANLABS-2021M1029753

PATIENT
  Sex: Female
  Weight: 85.71 kg

DRUGS (4)
  1. ISOTRETINOIN. [Suspect]
     Active Substance: ISOTRETINOIN
     Indication: ACNE
  2. ISOTRETINOIN. [Suspect]
     Active Substance: ISOTRETINOIN
     Indication: HIDRADENITIS
     Dosage: 30 MILLIGRAM, QD, ONE CAPSULE PER DAY
     Route: 048
     Dates: start: 20210106, end: 20210412
  3. AMNESTEEM [Suspect]
     Active Substance: ISOTRETINOIN
     Indication: HIDRADENITIS
     Dosage: 30 MILLIGRAM, QD, ONE CAPSULE PER DAY
     Dates: start: 20210106, end: 20210412
  4. AMNESTEEM [Suspect]
     Active Substance: ISOTRETINOIN
     Indication: ACNE

REACTIONS (2)
  - Drug ineffective [Unknown]
  - Dry skin [Not Recovered/Not Resolved]
